FAERS Safety Report 8504050-5 (Version None)
Quarter: 2012Q3

REPORT INFORMATION
  Report Type: 
  Country: None (occurrence: None)
  Receive Date: 20120702
  Receipt Date: 20120621
  Transmission Date: 20120928
  Serious: Yes (Hospitalization, Other)
  Sender: FDA-Public Use
  Company Number: AUR-APL-2012-01128

PATIENT
  Age: 48 Year
  Sex: Male

DRUGS (9)
  1. RISPERIDONE [Suspect]
     Indication: PRODUCT USED FOR UNKNOWN INDICATION
     Dosage: 2 MG (1 MG, 2 IN 1 D), ORAL
     Route: 048
     Dates: start: 20100608, end: 20120127
  2. SIMVASTATIN [Concomitant]
  3. PIRENZEPINE (PIRENZEPINE) [Suspect]
     Indication: SALIVARY HYPERSECRETION
     Dosage: 150 MG (50 MG, 3 IN 1 D), ORAL
     Route: 048
     Dates: start: 20100608, end: 20120120
  4. CITALOPRAM HYDROBROMIDE [Concomitant]
  5. PROCYCLIDINE 9PROCYCLIDINE) [Concomitant]
  6. VALPROIC AICD (VALPROIC ACID) [Concomitant]
  7. OLANZAPINE [Concomitant]
  8. CLOZARIL [Suspect]
     Indication: SCHIZOPHRENIA
     Dosage: 350 MG, ORAL; ORAL
     Route: 048
     Dates: start: 20101110, end: 20120119
  9. CLOZARIL [Suspect]
     Indication: SCHIZOPHRENIA
     Dosage: 350 MG, ORAL; ORAL
     Route: 048
     Dates: start: 20070220

REACTIONS (1)
  - THROMBOCYTOPENIA [None]
